FAERS Safety Report 4363833-6 (Version None)
Quarter: 2004Q2

REPORT INFORMATION
  Report Type: 
  Country: None (occurrence: None)
  Receive Date: 20040521
  Receipt Date: 20040504
  Transmission Date: 20050107
  Serious: Yes (Life-Threatening)
  Sender: FDA-Public Use
  Company Number: SAGL-ZLB/ 04/ 10 /UNK

PATIENT
  Age: 64 Year
  Sex: Female
  Weight: 58 kg

DRUGS (3)
  1. SANDOGLOBULIN (IMMUNOGLOBULIN HUMAN NORMAL) (SOLUTION) [Suspect]
     Indication: MONONEUROPATHY MULTIPLEX
     Dosage: 23 G,  O.A.D.,  I.V.
     Route: 042
     Dates: start: 20031001, end: 20031001
  2. SANDOGLOBULIN (IMMUNOGLOBULIN HUMAN NORMAL) (SOLUTION) [Suspect]
     Indication: MONONEUROPATHY MULTIPLEX
     Dosage: 23 G,  O.A.D.,  I.V.
     Route: 042
     Dates: start: 20031124, end: 20031126
  3. SANDOGLOBULIN (IMMUNOGLOBULIN HUMAN NORMAL) (SOLUTION) [Suspect]

REACTIONS (6)
  - CYANOSIS [None]
  - DIZZINESS [None]
  - INJECTION SITE CELLULITIS [None]
  - INJECTION SITE PHLEBITIS [None]
  - LOCALISED INFECTION [None]
  - TRANSIENT ISCHAEMIC ATTACK [None]
